FAERS Safety Report 6690723-6 (Version None)
Quarter: 2010Q2

REPORT INFORMATION
  Report Type: 
  Country: None (occurrence: None)
  Receive Date: 20100420
  Receipt Date: 20100420
  Transmission Date: 20101027
  Serious: No
  Sender: FDA-Public Use
  Company Number: None

PATIENT

DRUGS (1)
  1. RECLAST [Suspect]

REACTIONS (21)
  - ALOPECIA [None]
  - ASTHENIA [None]
  - DYSPEPSIA [None]
  - DYSPHONIA [None]
  - EMOTIONAL DISORDER [None]
  - FEAR [None]
  - FLUSHING [None]
  - GINGIVAL ERYTHEMA [None]
  - GINGIVAL PAIN [None]
  - HAIR TEXTURE ABNORMAL [None]
  - HEADACHE [None]
  - INSOMNIA [None]
  - LIP DRY [None]
  - LIP OEDEMA [None]
  - LIP PAIN [None]
  - NAUSEA [None]
  - PAIN [None]
  - PAIN OF SKIN [None]
  - PARAESTHESIA [None]
  - PRURITUS [None]
  - SKIN ULCER [None]
